FAERS Safety Report 8796641 (Version 1)
Quarter: 2012Q4

REPORT INFORMATION
  Report Type: 
  Country: DE (occurrence: DE)
  Receive Date: 20120920
  Receipt Date: 20120920
  Transmission Date: 20130627
  Serious: Yes (Hospitalization)
  Sender: FDA-Public Use
  Company Number: DE-BIOGENIDEC-2012BI037004

PATIENT
  Age: 30 Year
  Sex: Female

DRUGS (1)
  1. AVONEX [Suspect]
     Indication: MULTIPLE SCLEROSIS
     Route: 030
     Dates: start: 20100101

REACTIONS (4)
  - Uterine leiomyoma [Recovered/Resolved]
  - Uterine inflammation [Recovered/Resolved]
  - Abdominal adhesions [Recovered/Resolved]
  - Multiple sclerosis relapse [Recovered/Resolved]
